FAERS Safety Report 6367466-1 (Version None)
Quarter: 2009Q3

REPORT INFORMATION
  Report Type: 
  Country: None (occurrence: None)
  Receive Date: 20090921
  Receipt Date: 20090914
  Transmission Date: 20100115
  Serious: Yes (Other)
  Sender: FDA-Public Use
  Company Number: B0593727A

PATIENT
  Sex: Female

DRUGS (2)
  1. PAXIL [Suspect]
     Indication: DEPRESSION
     Dosage: 20MG TWICE PER DAY
     Route: 048
  2. PAXIL [Suspect]
     Dosage: 10MG UNKNOWN
     Route: 048

REACTIONS (1)
  - IMPULSE-CONTROL DISORDER [None]
